FAERS Safety Report 9494815 (Version 2)
Quarter: 2013Q4

REPORT INFORMATION
  Report Type: Spontaneous
  Country: US (occurrence: US)
  Receive Date: 20130903
  Receipt Date: 20131028
  Transmission Date: 20140711
  Serious: No
  Sender: FDA-Public Use
  Company Number: US-PFIZER INC-2013250300

PATIENT
  Age: 57 Year
  Sex: Female
  Weight: 71.2 kg

DRUGS (3)
  1. ADVIL MIGRAINE [Suspect]
     Indication: HEADACHE
     Dosage: 200 MG, AS NEEDED
     Route: 048
     Dates: start: 201308
  2. TOPAMAX [Concomitant]
     Indication: MIGRAINE
     Dosage: 100 MG, DAILY
     Route: 048
  3. KLONOPIN [Concomitant]
     Indication: ESSENTIAL TREMOR
     Dosage: 4 MG, DAILY

REACTIONS (3)
  - Poor quality drug administered [Unknown]
  - Glossodynia [Unknown]
  - Product physical issue [Unknown]
